FAERS Safety Report 8272076-5 (Version None)
Quarter: 2012Q2

REPORT INFORMATION
  Report Type: 
  Country: None (occurrence: None)
  Receive Date: 20120410
  Receipt Date: 20120330
  Transmission Date: 20120825
  Serious: Yes (Hospitalization, Other)
  Sender: FDA-Public Use
  Company Number: US-PFIZER INC-2012083078

PATIENT
  Age: 8 Year
  Sex: Male

DRUGS (8)
  1. DEXTROMETHORPHAN HYDROBROMIDE [Suspect]
     Indication: NASOPHARYNGITIS
     Dosage: UNK
  2. CLONIDINE [Concomitant]
     Dosage: UNK
  3. CITALOPRAM [Suspect]
     Indication: POST-TRAUMATIC STRESS DISORDER
  4. CITALOPRAM [Suspect]
     Indication: ATTENTION DEFICIT/HYPERACTIVITY DISORDER
     Dosage: UNK
  5. METHYLPHENIDATE [Concomitant]
     Dosage: UNK
  6. AMPHETAMINES [Concomitant]
  7. DIPHENHYDRAMINE [Concomitant]
  8. BENZODIAZEPINE DERIVATIVES [Concomitant]

REACTIONS (2)
  - SEROTONIN SYNDROME [None]
  - ELECTROCARDIOGRAM QT PROLONGED [None]
